FAERS Safety Report 5375771-0 (Version None)
Quarter: 2007Q2

REPORT INFORMATION
  Report Type: 
  Country: None (occurrence: None)
  Receive Date: 20070628
  Receipt Date: 20070619
  Transmission Date: 20071010
  Serious: Yes (Hospitalization)
  Sender: FDA-Public Use
  Company Number: 163-21880-07041283

PATIENT
  Age: 48 Year
  Sex: Male
  Weight: 70.7 kg

DRUGS (6)
  1. REVLIMID [Suspect]
     Indication: MYELOFIBROSIS
     Dosage: 10 MG, QD ON DAYS 1-28 ON CYCLES 1-6, ORAL
     Route: 048
     Dates: start: 20070301, end: 20070328
  2. REVLIMID [Suspect]
     Indication: MYELOFIBROSIS
     Dosage: 10 MG, QD ON DAYS 1-28 ON CYCLES 1-6, ORAL
     Route: 048
     Dates: start: 20070329, end: 20070405
  3. PREDNISONE TAB [Suspect]
     Indication: MYELOFIBROSIS
     Dosage: SEE IMAGE
     Route: 048
     Dates: start: 20070301, end: 20070328
  4. PREDNISONE TAB [Suspect]
     Indication: MYELOFIBROSIS
     Dosage: SEE IMAGE
     Route: 048
     Dates: start: 20070329, end: 20070418
  5. TYLENOL SINUS (TYLENOL SINUS MEDICATION) [Suspect]
     Indication: DRUG USE FOR UNKNOWN INDICATION
  6. TUMS (CALCIUM CARBONATE) [Suspect]
     Indication: DRUG USE FOR UNKNOWN INDICATION

REACTIONS (17)
  - ABSCESS [None]
  - ACTIVATED PARTIAL THROMBOPLASTIN TIME PROLONGED [None]
  - ARTERIAL DISORDER [None]
  - ARTERIAL THROMBOSIS LIMB [None]
  - BACTEROIDES INFECTION [None]
  - BETA HAEMOLYTIC STREPTOCOCCAL INFECTION [None]
  - CITROBACTER INFECTION [None]
  - FOOT AMPUTATION [None]
  - HAEMATOCRIT DECREASED [None]
  - HAEMOGLOBIN DECREASED [None]
  - HYPOAESTHESIA [None]
  - MOBILITY DECREASED [None]
  - OEDEMA PERIPHERAL [None]
  - PAIN IN EXTREMITY [None]
  - PERIPHERAL ISCHAEMIA [None]
  - SERRATIA INFECTION [None]
  - SOFT TISSUE NECROSIS [None]
